FAERS Safety Report 20637480 (Version 1)
Quarter: 2022Q1

REPORT INFORMATION
  Report Type: Spontaneous
  Country: DE (occurrence: DE)
  Receive Date: 20220325
  Receipt Date: 20220325
  Transmission Date: 20220423
  Serious: Yes (Other)
  Sender: FDA-Public Use
  Company Number: DE-EMBRYOTOX-202104211

PATIENT
  Age: 1 Day
  Sex: Male
  Weight: 2.59 kg

DRUGS (3)
  1. VENLAFAXINE [Suspect]
     Active Substance: VENLAFAXINE HYDROCHLORIDE
     Indication: Anxiety disorder
     Dosage: 75 MILLIGRAM, QD (75 [MG/D (BIS 37.5) ]
     Route: 064
     Dates: start: 20201023
  2. VENLAFAXINE [Suspect]
     Active Substance: VENLAFAXINE HYDROCHLORIDE
     Dosage: 37.5 MILLIGRAM, QD (DOSAGE WAS REDUCED TO 37.5 MG/D AT GW 31
     Route: 064
     Dates: end: 20210724
  3. COVAXIS [Concomitant]
     Indication: Immunisation
     Dosage: UNK
     Route: 064
     Dates: start: 20210505, end: 20210505

REACTIONS (2)
  - Small for dates baby [Unknown]
  - Foetal exposure during pregnancy [Recovered/Resolved]

NARRATIVE: CASE EVENT DATE: 20210701
